FAERS Safety Report 25760760 (Version 8)
Quarter: 2025Q4

REPORT INFORMATION
  Report Type: Report from Study
  Country: CA (occurrence: CA)
  Receive Date: 20250904
  Receipt Date: 20251214
  Transmission Date: 20260118
  Serious: Yes (Hospitalization, Other)
  Sender: PFIZER
  Company Number: CA-PFIZER INC-202500168820

PATIENT
  Age: 20 Year
  Sex: Female
  Weight: 69 kg

DRUGS (3)
  1. IXIFI [Suspect]
     Active Substance: INFLIXIMAB-QBTX
     Indication: Crohn^s disease
     Dosage: 5 MG/KG, EVERY 8 WEEKS
     Route: 042
     Dates: start: 20250806
  2. IXIFI [Suspect]
     Active Substance: INFLIXIMAB-QBTX
     Dosage: 300 MG, AFTER 6 WEEKS AND 1 DAY (WEEK 2 INDUCTION)
     Route: 042
     Dates: start: 20250918
  3. IXIFI [Suspect]
     Active Substance: INFLIXIMAB-QBTX
     Dosage: 5 MG/KG, EVERY 8 WEEKS
     Route: 042
     Dates: start: 20251030

REACTIONS (13)
  - Kidney infection [Unknown]
  - Abdominal pain lower [Recovered/Resolved]
  - Urinary tract infection [Recovered/Resolved]
  - Ovarian cyst ruptured [Unknown]
  - Vaginal infection [Recovered/Resolved]
  - Somnolence [Unknown]
  - Listless [Unknown]
  - Condition aggravated [Not Recovered/Not Resolved]
  - Tonsillitis [Not Recovered/Not Resolved]
  - Infection susceptibility increased [Not Recovered/Not Resolved]
  - Influenza like illness [Recovered/Resolved]
  - Coagulopathy [Unknown]
  - Off label use [Unknown]

NARRATIVE: CASE EVENT DATE: 20250101
